FAERS Safety Report 12004885 (Version 2)
Quarter: 2016Q1

REPORT INFORMATION
  Report Type: Spontaneous
  Country: US (occurrence: US)
  Receive Date: 20160204
  Receipt Date: 20160301
  Transmission Date: 20160526
  Serious: No
  Sender: FDA-Public Use
  Company Number: US-PFIZER INC-2016063952

PATIENT
  Age: 52 Year
  Sex: Male
  Weight: 69.4 kg

DRUGS (6)
  1. CHANTIX [Suspect]
     Active Substance: VARENICLINE TARTRATE
     Indication: SMOKING CESSATION THERAPY
     Dosage: 2 DF, DAILY
     Route: 048
     Dates: end: 201601
  2. ATIVAN [Concomitant]
     Active Substance: LORAZEPAM
     Indication: ANXIETY
     Dosage: 0.5 MG, AS NEEDED (QID, PRN)
     Route: 060
  3. KLONOPIN [Concomitant]
     Active Substance: CLONAZEPAM
     Indication: ANXIETY
     Dosage: 1 MG, 2X/DAY
  4. LAMICTAL [Concomitant]
     Active Substance: LAMOTRIGINE
     Indication: ANTIDEPRESSANT THERAPY
     Dosage: 100 MG, DAILY
  5. PRIMIDONE. [Concomitant]
     Active Substance: PRIMIDONE
     Indication: TREMOR
     Dosage: 250 MG, DAILY (QHS)
  6. DEPAKOTE [Concomitant]
     Active Substance: DIVALPROEX SODIUM
     Indication: BIPOLAR DISORDER
     Dosage: 250 MG, 2X/DAY

REACTIONS (9)
  - Vitamin D decreased [Unknown]
  - Depressed mood [Not Recovered/Not Resolved]
  - Insomnia [Unknown]
  - Fatigue [Not Recovered/Not Resolved]
  - Somnolence [Unknown]
  - Abnormal dreams [Not Recovered/Not Resolved]
  - Feeling drunk [Unknown]
  - Lethargy [Unknown]
  - Nervousness [Not Recovered/Not Resolved]

NARRATIVE: CASE EVENT DATE: 201511
